FAERS Safety Report 4982507-1 (Version None)
Quarter: 2006Q2

REPORT INFORMATION
  Report Type: 
  Country: None (occurrence: None)
  Receive Date: 20060421
  Receipt Date: 20060407
  Transmission Date: 20061013
  Serious: Yes (Other)
  Sender: FDA-Public Use
  Company Number: 2006049190

PATIENT
  Age: 68 Year
  Sex: Female
  Weight: 76.6579 kg

DRUGS (8)
  1. GLIPIZIDE [Suspect]
     Indication: DIABETES MELLITUS
     Dosage: 20 MG (10 MG, 2 IN 1 D)
     Dates: start: 20060101
  2. ALL OTHER THERAPEUTIC PRODUCTS (ALL OTHER THERAPEUTIC PRODUCTS) [Suspect]
     Indication: DIABETES MELLITUS
     Dates: start: 20060101, end: 20060101
  3. FUROSEMIDE [Concomitant]
  4. INSULIN [Concomitant]
  5. ZOCOR [Concomitant]
  6. LIPITOR [Concomitant]
  7. KLOR-CON (POTASSIIUM CHLORIDE) [Concomitant]
  8. ALBUTEROL [Concomitant]

REACTIONS (4)
  - BLOOD GLUCOSE INCREASED [None]
  - DYSURIA [None]
  - ILL-DEFINED DISORDER [None]
  - WEIGHT INCREASED [None]
